FAERS Safety Report 13828912 (Version 1)
Quarter: 2017Q3

REPORT INFORMATION
  Report Type: Spontaneous
  Country: US (occurrence: US)
  Receive Date: 20170802
  Receipt Date: 20170802
  Transmission Date: 20171127
  Serious: Yes (Hospitalization)
  Sender: FDA-Public Use
  Company Number: None

PATIENT
  Age: 69 Year
  Sex: Male
  Weight: 87.75 kg

DRUGS (14)
  1. XOFIGO [Suspect]
     Active Substance: RADIUM RA-223 DICHLORIDE
     Indication: PROSTATE CANCER METASTATIC
     Dosage: ?          OTHER FREQUENCY:ONCE A MONTH;?
     Route: 042
     Dates: start: 20170608, end: 20170706
  2. ACETAMINOPHEN. [Concomitant]
     Active Substance: ACETAMINOPHEN
  3. ZYTIGA [Suspect]
     Active Substance: ABIRATERONE ACETATE
     Indication: PROSTATE CANCER METASTATIC
     Route: 048
     Dates: start: 20170509, end: 20170801
  4. METOPROLOL SUCCINATE. [Concomitant]
     Active Substance: METOPROLOL SUCCINATE
  5. MS CONTIN [Concomitant]
     Active Substance: MORPHINE SULFATE
  6. LISINOPRIL. [Concomitant]
     Active Substance: LISINOPRIL
  7. TAMSULOSIN [Concomitant]
     Active Substance: TAMSULOSIN
  8. POLYETHYLENE GLYCOL [Concomitant]
     Active Substance: POLYETHYLENE GLYCOLS
  9. MORPHINE [Concomitant]
     Active Substance: MORPHINE
  10. FINASTERIDE. [Concomitant]
     Active Substance: FINASTERIDE
  11. TRAMADOL. [Concomitant]
     Active Substance: TRAMADOL
  12. MEPRAZOLE [Concomitant]
  13. GABAPENTIN. [Concomitant]
     Active Substance: GABAPENTIN
  14. DEXAMETHASONE. [Concomitant]
     Active Substance: DEXAMETHASONE

REACTIONS (13)
  - Neck pain [None]
  - Chest pain [None]
  - Nausea [None]
  - Atrial fibrillation [None]
  - Blood pressure increased [None]
  - Vomiting [None]
  - Back pain [None]
  - Pain in extremity [None]
  - Decreased appetite [None]
  - Ejection fraction decreased [None]
  - Ventricular arrhythmia [None]
  - Heart rate increased [None]
  - Pulmonary embolism [None]

NARRATIVE: CASE EVENT DATE: 20170801
